FAERS Safety Report 12226629 (Version 1)
Quarter: 2016Q1

REPORT INFORMATION
  Report Type: Spontaneous
  Country: JP (occurrence: JP)
  Receive Date: 20160331
  Receipt Date: 20160331
  Transmission Date: 20160526
  Serious: Yes (Hospitalization)
  Sender: FDA-Public Use
  Company Number: JP-MALLINCKRODT-T201503198

PATIENT
  Age: 76 Year
  Sex: Male
  Weight: 43 kg

DRUGS (19)
  1. METHADONE [Suspect]
     Active Substance: METHADONE HYDROCHLORIDE
     Dosage: 5 MG, (15 MG DAILY DOSE)
     Route: 048
     Dates: start: 20150526, end: 20150602
  2. RINDERON V [Concomitant]
     Active Substance: BETAMETHASONE VALERATE
     Dosage: 2MG
     Route: 051
     Dates: start: 20150609, end: 20150617
  3. METHADONE [Suspect]
     Active Substance: METHADONE HYDROCHLORIDE
     Dosage: 5 MG, (10 MG DAILY DOSE)
     Route: 048
     Dates: start: 20150521, end: 20150525
  4. RABEPRAZOLE SODIUM. [Concomitant]
     Active Substance: RABEPRAZOLE SODIUM
     Dosage: 10 MG
     Route: 048
     Dates: end: 20150715
  5. MAGMITT [Concomitant]
     Active Substance: MAGNESIUM OXIDE
     Dosage: 990 MG
     Dates: end: 20150715
  6. REMERON [Concomitant]
     Active Substance: MIRTAZAPINE
     Indication: ANALGESIC THERAPY
     Dosage: 7.5MG
     Route: 048
     Dates: start: 20150724
  7. MORPHINE HYDROCHLORIDE [Concomitant]
     Active Substance: MORPHINE HYDROCHLORIDE
     Indication: ANALGESIC THERAPY
     Dosage: 25MG
     Route: 051
     Dates: start: 20150602, end: 20150609
  8. METHADONE [Suspect]
     Active Substance: METHADONE HYDROCHLORIDE
     Dosage: 5MG (15MG TOTAL DAILY DOSE)
     Route: 048
     Dates: start: 20150726
  9. RABEPRAZOLE SODIUM. [Concomitant]
     Active Substance: RABEPRAZOLE SODIUM
     Dosage: 10MG
     Route: 048
     Dates: start: 20150722
  10. NAIXAN [Concomitant]
     Active Substance: NAPROXEN SODIUM
     Indication: ANALGESIC THERAPY
     Dosage: 400 MG
     Route: 048
     Dates: end: 20150608
  11. OXINORM [Concomitant]
     Active Substance: OXYCODONE HYDROCHLORIDE
     Dosage: 5 MG PRN
     Route: 048
     Dates: start: 20150516
  12. RINESTERON [Concomitant]
     Active Substance: BETAMETHASONE
     Indication: ANALGESIC THERAPY
     Dosage: 1.5MG
     Route: 048
     Dates: start: 20150618, end: 20150715
  13. METHADONE [Suspect]
     Active Substance: METHADONE HYDROCHLORIDE
     Indication: CANCER PAIN
     Dosage: 5 MG, (15 MG DAILY DOSE)
     Route: 048
     Dates: start: 20150515, end: 20150520
  14. RINDERON V [Concomitant]
     Active Substance: BETAMETHASONE VALERATE
     Indication: ANALGESIC THERAPY
     Dosage: 2MG
     Route: 051
     Dates: start: 20150603, end: 20150603
  15. METHADONE [Suspect]
     Active Substance: METHADONE HYDROCHLORIDE
     Dosage: 5MG (15MG TOTAL DAILY DOSE)
     Route: 048
     Dates: start: 20150610, end: 20150715
  16. MAGMITT [Concomitant]
     Active Substance: MAGNESIUM OXIDE
     Dosage: 750MG
     Route: 048
     Dates: start: 20150726
  17. RINESTERON [Concomitant]
     Active Substance: BETAMETHASONE
     Dosage: 1.5MG
     Route: 048
     Dates: start: 20150803
  18. BAKTAR [Concomitant]
     Active Substance: SULFAMETHOXAZOLE\TRIMETHOPRIM
     Dosage: 0.5 DF
     Route: 048
     Dates: start: 20150803
  19. RINDERON V [Concomitant]
     Active Substance: BETAMETHASONE VALERATE
     Dosage: 4MG
     Route: 051
     Dates: start: 20150604, end: 20150608

REACTIONS (3)
  - Vomiting [Recovered/Resolved]
  - Intestinal obstruction [Recovered/Resolved]
  - Somnolence [Recovered/Resolved]

NARRATIVE: CASE EVENT DATE: 20150517
